FAERS Safety Report 25056108 (Version 1)
Quarter: 2025Q1

REPORT INFORMATION
  Report Type: Spontaneous
  Country: CN (occurrence: CN)
  Receive Date: 20250309
  Receipt Date: 20250309
  Transmission Date: 20250408
  Serious: Yes (Hospitalization, Other)
  Sender: ALEXION PHARMACEUTICALS
  Company Number: CN-ASTRAZENECA-202503CHN004100CN

PATIENT
  Age: 75 Year
  Weight: 75 kg

DRUGS (1)
  1. DAPAGLIFLOZIN [Suspect]
     Active Substance: DAPAGLIFLOZIN
     Indication: Blood glucose decreased
     Dosage: 10 MILLIGRAM, QD

REACTIONS (2)
  - Diabetes mellitus inadequate control [Unknown]
  - Asymptomatic bacteriuria [Recovering/Resolving]
